FAERS Safety Report 8202262-1 (Version None)
Quarter: 2012Q1

REPORT INFORMATION
  Report Type: 
  Country: None (occurrence: None)
  Receive Date: 20120308
  Receipt Date: 20120227
  Transmission Date: 20120608
  Serious: Yes (Hospitalization)
  Sender: FDA-Public Use
  Company Number: 20110882

PATIENT
  Age: 55 Year
  Sex: Female

DRUGS (3)
  1. NOLIPREL FORTE (PERINDOPRIL) [Concomitant]
  2. GASTROMIX (NUTRITIONAL SUPPLEMENT) [Concomitant]
  3. VENOFER [Suspect]
     Indication: HAEMOGLOBIN DECREASED
     Dosage: 500 MG IN 500 ML NACL
     Route: 041
     Dates: start: 20111205, end: 20111205

REACTIONS (6)
  - INCORRECT DRUG ADMINISTRATION RATE [None]
  - DIZZINESS [None]
  - PYREXIA [None]
  - NAUSEA [None]
  - OFF LABEL USE [None]
  - INJECTION SITE SWELLING [None]
